FAERS Safety Report 9170917 (Version 1)
Quarter: 2013Q1

REPORT INFORMATION
  Report Type: Spontaneous
  Country: US (occurrence: None)
  Receive Date: 20130315
  Receipt Date: 20130315
  Transmission Date: 20140127
  Serious: Yes (Other)
  Sender: FDA-Public Use
  Company Number: None

PATIENT
  Age: 30 Year
  Sex: Female
  Weight: 79 kg

DRUGS (2)
  1. VENLAFAXINE [Suspect]
     Indication: ANXIETY
     Dosage: ONCE A DAY
     Route: 048
     Dates: start: 20130206, end: 20130226
  2. VENLAFAXINE [Suspect]
     Indication: DEPRESSION
     Dosage: ONCE A DAY
     Route: 048
     Dates: start: 20130206, end: 20130226

REACTIONS (5)
  - Dizziness [None]
  - Anxiety [None]
  - Claustrophobia [None]
  - Product substitution issue [None]
  - Nervous system disorder [None]
